FAERS Safety Report 11634954 (Version 1)
Quarter: 2015Q4

REPORT INFORMATION
  Report Type: Spontaneous
  Country: FR (occurrence: FR)
  Receive Date: 20151015
  Receipt Date: 20151015
  Transmission Date: 20160304
  Serious: Yes (Hospitalization)
  Sender: FDA-Public Use
  Company Number: ALCN2015FR006312

PATIENT
  Age: 23 Year
  Sex: Male

DRUGS (6)
  1. PIROXICAM. [Suspect]
     Active Substance: PIROXICAM
     Indication: TORTICOLLIS
     Dosage: UNK, ONCE/SINGLE
     Route: 023
     Dates: start: 201507, end: 201507
  2. AUGMENTIN [Suspect]
     Active Substance: AMOXICILLIN\CLAVULANATE POTASSIUM
     Indication: OTITIS MEDIA ACUTE
     Dosage: UNK
     Route: 048
     Dates: start: 20150711, end: 20150729
  3. CILOXADEX [Suspect]
     Active Substance: CIPROFLOXACIN HYDROCHLORIDE\DEXAMETHASONE
     Indication: OTITIS MEDIA ACUTE
     Dosage: UNK
     Route: 001
     Dates: start: 20150708, end: 20150724
  4. CORTANCYL [Suspect]
     Active Substance: PREDNISONE
     Indication: OTITIS MEDIA ACUTE
     Dosage: UNK
     Route: 048
     Dates: start: 20150711, end: 20150729
  5. XYLOCAINE [Suspect]
     Active Substance: LIDOCAINE HYDROCHLORIDE
     Indication: TORTICOLLIS
     Dosage: UNK, ONCE/SINGLE
     Route: 023
     Dates: start: 201507, end: 201507
  6. OTOFA [Suspect]
     Active Substance: RIFAMYCIN SODIUM
     Indication: OTITIS MEDIA ACUTE
     Dosage: UNK
     Route: 001
     Dates: start: 20150724, end: 20150729

REACTIONS (1)
  - Mastoiditis [Recovered/Resolved]

NARRATIVE: CASE EVENT DATE: 20150729
